FAERS Safety Report 7109784-5 (Version None)
Quarter: 2010Q4

REPORT INFORMATION
  Report Type: 
  Country: None (occurrence: None)
  Receive Date: 20101118
  Receipt Date: 20101108
  Transmission Date: 20110411
  Serious: Yes (Other)
  Sender: FDA-Public Use
  Company Number: US-RANBAXY-2010US-39363

PATIENT

DRUGS (2)
  1. IBUPROFEN [Suspect]
     Indication: ARTHRALGIA
     Dosage: UNK, UNK
     Route: 065
  2. MORINDA [Suspect]
     Indication: BLOOD GLUCOSE
     Dosage: UNK UNK
     Route: 065

REACTIONS (1)
  - HYPERKALAEMIA [None]
